FAERS Safety Report 11532007 (Version 2)
Quarter: 2015Q3

REPORT INFORMATION
  Report Type: Spontaneous
  Country: US (occurrence: US)
  Receive Date: 20150921
  Receipt Date: 20150930
  Transmission Date: 20151125
  Serious: Yes (Other)
  Sender: FDA-Public Use
  Company Number: US-UNICHEM LABORATORIES LIMITED-UCM201509-000803

PATIENT
  Age: 33 Year
  Sex: Female
  Weight: 121.56 kg

DRUGS (5)
  1. MIRTAZAPINE. [Concomitant]
     Active Substance: MIRTAZAPINE
  2. FLUOXETINE [Concomitant]
     Active Substance: FLUOXETINE\FLUOXETINE HYDROCHLORIDE
  3. HYDROCHLOROTHIAZIDE. [Suspect]
     Active Substance: HYDROCHLOROTHIAZIDE
     Indication: HYPERTENSION
     Dates: end: 20150821
  4. SEROQUEL [Concomitant]
     Active Substance: QUETIAPINE FUMARATE
  5. SPIRONOLACTONE. [Concomitant]
     Active Substance: SPIRONOLACTONE

REACTIONS (5)
  - Thrombosis [Unknown]
  - Contusion [Unknown]
  - Hypokalaemia [Unknown]
  - Gastric ulcer [Unknown]
  - Swelling [Unknown]

NARRATIVE: CASE EVENT DATE: 20140917
